FAERS Safety Report 9605215 (Version 1)
Quarter: 2013Q4

REPORT INFORMATION
  Report Type: Report from Study
  Country: ES (occurrence: ES)
  Receive Date: 20131008
  Receipt Date: 20131008
  Transmission Date: 20140711
  Serious: Yes (Death)
  Sender: FDA-Public Use
  Company Number: ES-PFIZER INC-2013286316

PATIENT
  Age: 55 Year
  Sex: Male

DRUGS (3)
  1. VORICONAZOLE [Suspect]
  2. FLUCONAZOLE [Suspect]
     Indication: PROPHYLAXIS
     Dosage: 200 MG, DAILY
  3. AMPHOTERICINE B, LIPOSOME [Suspect]
     Dosage: 4MG/KG DAILY

REACTIONS (2)
  - Septic shock [Fatal]
  - Drug ineffective [Fatal]
